FAERS Safety Report 6398965-4 (Version None)
Quarter: 2009Q4

REPORT INFORMATION
  Report Type: 
  Country: None (occurrence: None)
  Receive Date: 20091013
  Receipt Date: 20090911
  Transmission Date: 20100525
  Serious: No
  Sender: FDA-Public Use
  Company Number: US-BAYER-200914419BCC

PATIENT
  Age: 43 Year
  Sex: Female
  Weight: 100 kg

DRUGS (2)
  1. MIDOL [Suspect]
     Indication: MENSTRUAL DISORDER
     Route: 048
     Dates: start: 19990101, end: 20090911
  2. MIDOL [Suspect]
     Indication: MENSTRUAL DISORDER
     Dosage: TOOK 2 CAPLETS 2 TIMES IN A DAYOF HER MENSTRUATION AND MAYBE 1 CAPLET NEXT DAY
     Route: 048
     Dates: start: 19990101, end: 20090911

REACTIONS (2)
  - FEELING DRUNK [None]
  - SEDATION [None]
